FAERS Safety Report 13307550 (Version 2)
Quarter: 2017Q1

REPORT INFORMATION
  Report Type: Spontaneous
  Country: BE (occurrence: BE)
  Receive Date: 20170308
  Receipt Date: 20170310
  Transmission Date: 20170428
  Serious: Yes (Death, Other)
  Sender: FDA-Public Use
  Company Number: BE-JNJFOC-20170306494

PATIENT
  Age: 58 Year
  Sex: Female
  Weight: 50 kg

DRUGS (4)
  1. DEXAMETHASONE. [Concomitant]
     Active Substance: DEXAMETHASONE
     Indication: PLASMA CELL LEUKAEMIA
     Dates: start: 20170131
  2. CYCLOPHOSPHAMIDE. [Concomitant]
     Active Substance: CYCLOPHOSPHAMIDE
     Indication: PLASMA CELL LEUKAEMIA
  3. BORTEZOMIB [Concomitant]
     Active Substance: BORTEZOMIB
     Indication: PLASMA CELL LEUKAEMIA
     Dates: start: 20170131
  4. DARZALEX [Suspect]
     Active Substance: DARATUMUMAB
     Indication: PLASMA CELL LEUKAEMIA
     Route: 042

REACTIONS (6)
  - Neutropenia [Unknown]
  - Pyrexia [Unknown]
  - Off label use [Unknown]
  - Infusion related reaction [Unknown]
  - Septic shock [Fatal]
  - Pseudomonal sepsis [Fatal]

NARRATIVE: CASE EVENT DATE: 20170301
